FAERS Safety Report 8883758 (Version 1)
Quarter: 2012Q4

REPORT INFORMATION
  Report Type: 
  Country: US (occurrence: US)
  Receive Date: 20121102
  Receipt Date: 20121102
  Transmission Date: 20130627
  Serious: No
  Sender: FDA-Public Use
  Company Number: US-ASTRAZENECA-2012SE06190

PATIENT
  Age: 65 Year
  Sex: Male
  Weight: 99.3 kg

DRUGS (5)
  1. CRESTOR [Suspect]
     Route: 048
     Dates: start: 201112
  2. CRESTOR [Suspect]
     Route: 048
  3. ALLOPURINOL [Concomitant]
     Dosage: 1/2 HALF CUTTED
  4. HCTZ [Concomitant]
  5. AXERON [Concomitant]
     Dosage: 2 SQUIRTS APPLIED DAILY

REACTIONS (4)
  - Renal failure [Unknown]
  - Pyrexia [Unknown]
  - Back pain [Unknown]
  - Androgen deficiency [Unknown]
